FAERS Safety Report 6022200-X (Version None)
Quarter: 2008Q4

REPORT INFORMATION
  Report Type: 
  Country: None (occurrence: None)
  Receive Date: 20081229
  Receipt Date: 20081219
  Transmission Date: 20090506
  Serious: Yes (Hospitalization)
  Sender: FDA-Public Use
  Company Number: JP-ABBOTT-08P-087-0487375-00

PATIENT
  Sex: Male

DRUGS (4)
  1. LEUPLIN DEPOT FOR INJECTION KIT 3.75MG [Suspect]
     Indication: PROSTATE CANCER
     Route: 058
     Dates: start: 20041101, end: 20070101
  2. LEUPLIN DEPOT FOR INJECTION KIT 3.75MG [Suspect]
     Route: 058
     Dates: start: 20070404, end: 20071205
  3. CASODEX [Concomitant]
     Indication: PROSTATE CANCER
     Route: 048
     Dates: start: 20041101, end: 20070101
  4. CASODEX [Concomitant]
     Dates: start: 20070101, end: 20070101

REACTIONS (10)
  - ANOREXIA [None]
  - CHOLECYSTITIS ACUTE [None]
  - COLD SWEAT [None]
  - FALL [None]
  - FEELING ABNORMAL [None]
  - HEPATIC FUNCTION ABNORMAL [None]
  - LOSS OF CONSCIOUSNESS [None]
  - PROSTATIC SPECIFIC ANTIGEN INCREASED [None]
  - SYNCOPE [None]
  - TESTICULAR ATROPHY [None]
